FAERS Safety Report 8353206-3 (Version None)
Quarter: 2012Q2

REPORT INFORMATION
  Report Type: 
  Country: None (occurrence: None)
  Receive Date: 20120511
  Receipt Date: 20120508
  Transmission Date: 20120825
  Serious: Yes (Hospitalization, Other)
  Sender: FDA-Public Use
  Company Number: US-BAYER-2012-045565

PATIENT
  Age: 67 Year
  Sex: Female

DRUGS (2)
  1. NEXAVAR [Suspect]
  2. AFLIBERCEPT [Suspect]
     Dosage: 4 MG/KG, Q2WK

REACTIONS (10)
  - NAUSEA [None]
  - VOMITING [None]
  - PERITONEAL HAEMORRHAGE [None]
  - ABDOMINAL DISTENSION [None]
  - COELIAC ARTERY OCCLUSION [None]
  - ABDOMINAL PAIN [None]
  - PAIN [None]
  - THROMBOTIC STROKE [None]
  - VASCULAR PSEUDOANEURYSM [None]
  - CHEST PAIN [None]
